FAERS Safety Report 24837900 (Version 1)
Quarter: 2025Q1

REPORT INFORMATION
  Report Type: Spontaneous
  Country: GB (occurrence: GB)
  Receive Date: 20250113
  Receipt Date: 20250113
  Transmission Date: 20250408
  Serious: Yes (Other)
  Sender: ANI
  Company Number: GB-ANIPHARMA-2024-UK-000229

PATIENT
  Age: 59 Year
  Sex: Male
  Weight: 94 kg

DRUGS (12)
  1. CANDESARTAN CILEXETIL AND HYDROCHLOROTHIAZIDE [Suspect]
     Active Substance: CANDESARTAN CILEXETIL\HYDROCHLOROTHIAZIDE
     Indication: Ill-defined disorder
  2. AMLODIPINE [Concomitant]
     Active Substance: AMLODIPINE BESYLATE
     Dates: start: 20240808, end: 20241021
  3. OMEPRAZOLE [Suspect]
     Active Substance: OMEPRAZOLE
     Route: 048
     Dates: start: 20240920
  4. CANDESARTAN CILEXETIL [Suspect]
     Active Substance: CANDESARTAN CILEXETIL
     Indication: Ill-defined disorder
     Route: 048
     Dates: start: 20241021
  5. DOXYCYCLINE [Suspect]
     Active Substance: DOXYCYCLINE
     Route: 048
     Dates: start: 20240913, end: 20240918
  6. METOCLOPRAMIDE [Concomitant]
     Active Substance: METOCLOPRAMIDE
     Dates: start: 20240920, end: 20241018
  7. ALLOPURINOL [Concomitant]
     Active Substance: ALLOPURINOL
     Dates: start: 20220912
  8. LEVOTHYROXINE [Concomitant]
     Active Substance: LEVOTHYROXINE
     Dates: start: 20220912
  9. NEBIVOLOL [Concomitant]
     Active Substance: NEBIVOLOL
     Dates: start: 20220912
  10. OLODATEROL HYDROCHLORIDE\TIOTROPIUM BROMIDE MONOHYDRATE [Concomitant]
     Active Substance: OLODATEROL HYDROCHLORIDE\TIOTROPIUM BROMIDE MONOHYDRATE
     Dates: start: 20220912
  11. PREGABALIN [Concomitant]
     Active Substance: PREGABALIN
     Dates: start: 20230223, end: 20241120
  12. RANITIDINE HYDROCHLORIDE [Concomitant]
     Active Substance: RANITIDINE HYDROCHLORIDE
     Dates: start: 20240606, end: 20241120

REACTIONS (1)
  - Thrombocytopenia [Unknown]
